FAERS Safety Report 6098274-7 (Version None)
Quarter: 2009Q1

REPORT INFORMATION
  Report Type: 
  Country: None (occurrence: None)
  Receive Date: 20090227
  Receipt Date: 20090217
  Transmission Date: 20090719
  Serious: Yes (Hospitalization)
  Sender: FDA-Public Use
  Company Number: US-ABBOTT-09P-163-0557739-00

PATIENT
  Sex: Female
  Weight: 79.45 kg

DRUGS (9)
  1. HUMIRA [Suspect]
     Indication: RHEUMATOID ARTHRITIS
     Route: 058
     Dates: start: 20070726, end: 20080701
  2. ASACOL [Concomitant]
     Indication: CROHN'S DISEASE
  3. LEVSINEX [Concomitant]
     Indication: CROHN'S DISEASE
  4. MAXZIDE [Concomitant]
     Indication: CROHN'S DISEASE
     Dosage: 75/50 MG
  5. ZOCOR [Concomitant]
     Indication: BLOOD CHOLESTEROL
  6. PRILOSEC [Concomitant]
     Indication: DYSPEPSIA
  7. PAXIL [Concomitant]
     Indication: NERVOUSNESS
  8. FOLIC ACID [Concomitant]
     Indication: RHEUMATOID ARTHRITIS
  9. ACTOS [Concomitant]
     Indication: DIABETES MELLITUS

REACTIONS (5)
  - ARTHRALGIA [None]
  - BONE DISORDER [None]
  - INFREQUENT BOWEL MOVEMENTS [None]
  - MOVEMENT DISORDER [None]
  - TUBERCULIN TEST POSITIVE [None]
